FAERS Safety Report 23405300 (Version 1)
Quarter: 2024Q1

REPORT INFORMATION
  Report Type: Report from Study
  Country: US (occurrence: US)
  Receive Date: 20240116
  Receipt Date: 20240116
  Transmission Date: 20240410
  Serious: Yes (Other)
  Sender: FDA-Public Use
  Company Number: US-ABBVIE-5589177

PATIENT
  Sex: Female

DRUGS (2)
  1. HUMIRA [Suspect]
     Active Substance: ADALIMUMAB
     Indication: Rheumatoid arthritis
     Route: 058
  2. COUMADIN [Concomitant]
     Active Substance: WARFARIN SODIUM
     Indication: Product used for unknown indication

REACTIONS (12)
  - Positive airway pressure therapy [Unknown]
  - Migraine [Unknown]
  - Back pain [Unknown]
  - Hypertension [Unknown]
  - Mycotic allergy [Unknown]
  - Seasonal allergy [Unknown]
  - Joint instability [Unknown]
  - Atrial fibrillation [Unknown]
  - Knee arthroplasty [Unknown]
  - Coma [Unknown]
  - Anxiety [Unknown]
  - Allergy to plants [Unknown]
